FAERS Safety Report 7781472-1 (Version None)
Quarter: 2011Q3

REPORT INFORMATION
  Report Type: 
  Country: None (occurrence: None)
  Receive Date: 20110927
  Receipt Date: 20110902
  Transmission Date: 20111222
  Serious: No
  Sender: FDA-Public Use
  Company Number: US-ABBOTT-11P-163-0851935-00

PATIENT

DRUGS (1)
  1. CALCIJEX [Suspect]
     Indication: PRODUCT USED FOR UNKNOWN INDICATION
     Dosage: GIVEN BY MD SUBCUTANEOUSLY
     Route: 042

REACTIONS (2)
  - INJECTION SITE PAIN [None]
  - INCORRECT ROUTE OF DRUG ADMINISTRATION [None]
